FAERS Safety Report 19236117 (Version 20)
Quarter: 2024Q1

REPORT INFORMATION
  Report Type: Spontaneous
  Country: CA (occurrence: CA)
  Receive Date: 20210510
  Receipt Date: 20240203
  Transmission Date: 20240410
  Serious: Yes (Hospitalization, Other)
  Sender: FDA-Public Use
  Company Number: CA-MLMSERVICE-20210421-2849552-1

PATIENT

DRUGS (551)
  1. GABAPENTIN [Interacting]
     Active Substance: GABAPENTIN
     Indication: Pain
     Dosage: 600 MILLIGRAM, 4 EVERY 1 DAYS
     Route: 048
  2. GABAPENTIN [Interacting]
     Active Substance: GABAPENTIN
     Indication: Scoliosis
     Dosage: 600 MILLIGRAM, 3 EVERY 1 DAYS
     Route: 048
  3. GABAPENTIN [Interacting]
     Active Substance: GABAPENTIN
     Dosage: 600 MILLIGRAM, 3 EVERY 1 DAYS
     Route: 048
  4. GABAPENTIN [Interacting]
     Active Substance: GABAPENTIN
     Dosage: 600 MILLIGRAM
     Route: 048
  5. GABAPENTIN [Interacting]
     Active Substance: GABAPENTIN
     Dosage: 600 MILLIGRAM, 4 EVERY 1 DAYS
     Route: 048
  6. GABAPENTIN [Interacting]
     Active Substance: GABAPENTIN
     Dosage: UNK
     Route: 065
  7. GABAPENTIN [Interacting]
     Active Substance: GABAPENTIN
     Dosage: 600 MILLIGRAM, 3 EVERY 1 DAYS
     Route: 048
  8. GABAPENTIN [Interacting]
     Active Substance: GABAPENTIN
     Dosage: 600 MILLIGRAM
     Route: 048
  9. GABAPENTIN [Interacting]
     Active Substance: GABAPENTIN
     Dosage: 600 MILLIGRAM, 4 EVERY 1 DAYS
     Route: 048
  10. GABAPENTIN [Interacting]
     Active Substance: GABAPENTIN
     Dosage: 600 MILLIGRAM, 4 EVERY 1 DAYS
     Route: 065
  11. GABAPENTIN [Interacting]
     Active Substance: GABAPENTIN
     Dosage: 600 MILLIGRAM
     Route: 048
  12. GABAPENTIN [Interacting]
     Active Substance: GABAPENTIN
     Dosage: 600 MILLIGRAM
     Route: 048
  13. GABAPENTIN [Interacting]
     Active Substance: GABAPENTIN
     Dosage: 400 MILLIGRAM, 4 EVERY 1 DAYS
     Route: 065
  14. GABAPENTIN [Interacting]
     Active Substance: GABAPENTIN
     Dosage: 600 MILLIGRAM, 4 EVERY 1 DAYS
     Route: 065
  15. GABAPENTIN [Interacting]
     Active Substance: GABAPENTIN
     Dosage: 600 MILLIGRAM, 3 EVERY 1 DAYS
     Route: 048
  16. GABAPENTIN [Interacting]
     Active Substance: GABAPENTIN
     Dosage: 600 MILLIGRAM, 4 EVERY 1 DAYS
     Route: 065
  17. GABAPENTIN [Interacting]
     Active Substance: GABAPENTIN
     Dosage: UNK
     Route: 065
  18. GABAPENTIN [Interacting]
     Active Substance: GABAPENTIN
     Dosage: 600 MILLIGRAM, 4 EVERY 1 DAYS
     Route: 065
  19. GABAPENTIN [Interacting]
     Active Substance: GABAPENTIN
     Dosage: 600 MILLIGRAM, 1 EVERY 8 HOURS
     Route: 048
  20. GABAPENTIN [Interacting]
     Active Substance: GABAPENTIN
     Dosage: 600 MILLIGRAM
     Route: 048
  21. GABAPENTIN [Interacting]
     Active Substance: GABAPENTIN
     Dosage: 600 MILLIGRAM
     Route: 048
  22. GABAPENTIN [Interacting]
     Active Substance: GABAPENTIN
     Dosage: 600 MILLIGRAM
     Route: 048
  23. GABAPENTIN [Interacting]
     Active Substance: GABAPENTIN
     Dosage: 400 MILLIGRAM
     Route: 065
  24. GABAPENTIN [Interacting]
     Active Substance: GABAPENTIN
     Dosage: 400 MILLIGRAM
     Route: 065
  25. GABAPENTIN [Interacting]
     Active Substance: GABAPENTIN
     Dosage: 400 MILLIGRAM
     Route: 048
  26. RISPERIDONE [Interacting]
     Active Substance: RISPERIDONE
     Indication: Affective disorder
     Dosage: 1 MILLIGRAM, 1 EVERY 1 DAYS
     Route: 048
  27. RISPERIDONE [Interacting]
     Active Substance: RISPERIDONE
     Dosage: 0.25 MILLIGRAM, 1 EVERY 1 DAYS
     Route: 048
  28. RISPERIDONE [Interacting]
     Active Substance: RISPERIDONE
     Dosage: 1 MILLIGRAM, 1 EVERY 1 DAYS
     Route: 048
  29. DOXEPIN [Interacting]
     Active Substance: DOXEPIN
     Indication: Major depression
     Dosage: 50 MILLIGRAM, 1 EVERY 1 DAYS
     Route: 048
  30. DOXEPIN [Interacting]
     Active Substance: DOXEPIN
     Dosage: 100 MILLIGRAM, 1 EVERY 1 DAYS
     Route: 048
  31. DOXEPIN [Interacting]
     Active Substance: DOXEPIN
     Dosage: 150 MILLIGRAM, QD
     Route: 048
  32. DOXEPIN [Interacting]
     Active Substance: DOXEPIN
     Dosage: 150 MILLIGRAM
     Route: 065
  33. DOXEPIN [Interacting]
     Active Substance: DOXEPIN
     Dosage: 150 MILLIGRAM, 1 EVERY 1 DAYS
     Route: 048
  34. DOXEPIN [Interacting]
     Active Substance: DOXEPIN
     Dosage: 100 MILLIGRAM
     Route: 048
  35. DOXEPIN [Interacting]
     Active Substance: DOXEPIN
     Dosage: 50 MILLIGRAM
     Route: 048
  36. CYCLOBENZAPRINE [Interacting]
     Active Substance: CYCLOBENZAPRINE
     Indication: Pain
     Dosage: 10 MILLIGRAM, EVERY 12 HOURS
     Route: 048
  37. CYCLOBENZAPRINE [Interacting]
     Active Substance: CYCLOBENZAPRINE
     Indication: Scoliosis
     Dosage: 10 MILLIGRAM, 3 EVERY 1 DAYS
     Route: 048
  38. CYCLOBENZAPRINE [Interacting]
     Active Substance: CYCLOBENZAPRINE
     Dosage: 10 MILLIGRAM, EVERY 12 MONTHS
     Route: 048
  39. CYCLOBENZAPRINE [Interacting]
     Active Substance: CYCLOBENZAPRINE
     Dosage: 50 MILLIEQUIVALENT, 2 EVERY 1 DAYS
     Route: 048
  40. CYCLOBENZAPRINE [Interacting]
     Active Substance: CYCLOBENZAPRINE
     Dosage: 10 MILLIGRAM
     Route: 048
  41. CYCLOBENZAPRINE [Interacting]
     Active Substance: CYCLOBENZAPRINE
     Dosage: 10 MILLIGRAM, 2 EVERY 1 DAYS
     Route: 048
  42. CYCLOBENZAPRINE [Interacting]
     Active Substance: CYCLOBENZAPRINE
     Dosage: 10 MILLIGRAM, 1 EVERY 12 MONTHS
     Route: 048
  43. CYCLOBENZAPRINE [Interacting]
     Active Substance: CYCLOBENZAPRINE
     Dosage: 10 MILLIGRAM, 1 EVERY 1 DAYS
     Route: 048
  44. CYCLOBENZAPRINE [Interacting]
     Active Substance: CYCLOBENZAPRINE
     Dosage: 10 MILLIGRAM, 1 EVERY .5 DAYS
     Route: 048
  45. CYCLOBENZAPRINE [Interacting]
     Active Substance: CYCLOBENZAPRINE
     Dosage: 10 MILLIGRAM, 1 EVERY .3 DAYS
     Route: 048
  46. CYCLOBENZAPRINE [Interacting]
     Active Substance: CYCLOBENZAPRINE
     Dosage: UNK
     Route: 065
  47. CYCLOBENZAPRINE [Interacting]
     Active Substance: CYCLOBENZAPRINE
     Dosage: 10 MILLIGRAM
     Route: 065
  48. CYCLOBENZAPRINE [Interacting]
     Active Substance: CYCLOBENZAPRINE
     Dosage: 50 MILLIEQUIVALENT
     Route: 048
  49. CYCLOBENZAPRINE [Interacting]
     Active Substance: CYCLOBENZAPRINE
     Dosage: 10 MILLIGRAM
     Route: 048
  50. CYCLOBENZAPRINE [Interacting]
     Active Substance: CYCLOBENZAPRINE
     Dosage: 10 MILLIGRAM
     Route: 048
  51. CYCLOBENZAPRINE [Interacting]
     Active Substance: CYCLOBENZAPRINE
     Dosage: UNK
     Route: 065
  52. CYCLOBENZAPRINE [Interacting]
     Active Substance: CYCLOBENZAPRINE
     Dosage: 10 MILLIGRAM
     Route: 048
  53. CYCLOBENZAPRINE [Interacting]
     Active Substance: CYCLOBENZAPRINE
     Dosage: 10 MILLIGRAM
     Route: 048
  54. CYCLOBENZAPRINE [Interacting]
     Active Substance: CYCLOBENZAPRINE
     Dosage: 10 MILLIGRAM
     Route: 048
  55. CYCLOBENZAPRINE [Interacting]
     Active Substance: CYCLOBENZAPRINE
     Dosage: 10 MILLIGRAM
     Route: 048
  56. CYCLOBENZAPRINE [Interacting]
     Active Substance: CYCLOBENZAPRINE
     Dosage: 10 MILLIGRAM
     Route: 048
  57. LORAZEPAM [Interacting]
     Active Substance: LORAZEPAM
     Indication: Withdrawal syndrome
     Dosage: UNK UNK, PRN (1 TO 2 MG PO 4 TIMES DAILY AS NEEDED)
     Route: 048
  58. LORAZEPAM [Interacting]
     Active Substance: LORAZEPAM
     Indication: Anxiety
     Dosage: UNK
     Route: 048
  59. LORAZEPAM [Interacting]
     Active Substance: LORAZEPAM
     Indication: Affective disorder
     Dosage: 2 MILLIGRAM, 4 EVERY 1 DAYS
     Route: 048
  60. LORAZEPAM [Interacting]
     Active Substance: LORAZEPAM
     Dosage: 5 MILLIGRAM
     Route: 065
  61. LORAZEPAM [Interacting]
     Active Substance: LORAZEPAM
     Dosage: 1 MILLIGRAM (ONCE)
     Route: 048
  62. LORAZEPAM [Interacting]
     Active Substance: LORAZEPAM
     Dosage: 1 MILLIGRAM (ONCE)
     Route: 030
  63. LORAZEPAM [Interacting]
     Active Substance: LORAZEPAM
     Dosage: 2 MILLIGRAM
     Route: 065
  64. LORAZEPAM [Interacting]
     Active Substance: LORAZEPAM
     Dosage: 6 MILLIGRAM
     Route: 065
  65. LORAZEPAM [Interacting]
     Active Substance: LORAZEPAM
     Dosage: 3 MILLIGRAM
     Route: 065
  66. LORAZEPAM [Interacting]
     Active Substance: LORAZEPAM
     Dosage: 4 MILLIGRAM
     Route: 065
  67. LORAZEPAM [Interacting]
     Active Substance: LORAZEPAM
     Dosage: 7 MILLIGRAM
     Route: 065
  68. LORAZEPAM [Interacting]
     Active Substance: LORAZEPAM
     Dosage: 7 MILLIGRAM
     Route: 065
  69. LORAZEPAM [Interacting]
     Active Substance: LORAZEPAM
     Dosage: UNK, PRN
     Route: 048
  70. LORAZEPAM [Interacting]
     Active Substance: LORAZEPAM
     Dosage: 1 MILLIGRAM (ONCE)
     Route: 030
  71. LORAZEPAM [Interacting]
     Active Substance: LORAZEPAM
     Dosage: UNK
     Route: 048
  72. LORAZEPAM [Interacting]
     Active Substance: LORAZEPAM
     Dosage: UNK
     Route: 065
  73. LORAZEPAM [Interacting]
     Active Substance: LORAZEPAM
     Dosage: UNK
     Route: 065
  74. LORAZEPAM [Interacting]
     Active Substance: LORAZEPAM
     Dosage: UNK
     Route: 048
  75. LORAZEPAM [Interacting]
     Active Substance: LORAZEPAM
     Dosage: UNK UNK, PRN (AS REQUIRED)
     Route: 048
  76. LORAZEPAM [Interacting]
     Active Substance: LORAZEPAM
     Dosage: 2 MILLIGRAM, 1 EVERY .2 DAYS
     Route: 048
  77. LORAZEPAM [Interacting]
     Active Substance: LORAZEPAM
     Dosage: 1 MILLIGRAM, 1 EVERY 1 DAYS
     Route: 030
  78. LORAZEPAM [Interacting]
     Active Substance: LORAZEPAM
     Dosage: 5 MILLIGRAM, 1 EVERY 1 DAY
     Route: 065
  79. LORAZEPAM [Interacting]
     Active Substance: LORAZEPAM
     Dosage: 1 MILLIGRAM
     Route: 065
  80. LORAZEPAM [Interacting]
     Active Substance: LORAZEPAM
     Dosage: UNK
     Route: 030
  81. LORAZEPAM [Interacting]
     Active Substance: LORAZEPAM
     Dosage: UNK
     Route: 048
  82. LORAZEPAM [Interacting]
     Active Substance: LORAZEPAM
     Dosage: UNK
     Route: 048
  83. LORAZEPAM [Interacting]
     Active Substance: LORAZEPAM
     Dosage: UNK
     Route: 048
  84. LORAZEPAM [Interacting]
     Active Substance: LORAZEPAM
     Dosage: UNK
     Route: 048
  85. LORAZEPAM [Interacting]
     Active Substance: LORAZEPAM
     Dosage: 1 MILLIGRAM
     Route: 030
  86. LORAZEPAM [Interacting]
     Active Substance: LORAZEPAM
     Dosage: 1 MILLIGRAM
     Route: 048
  87. LORAZEPAM [Interacting]
     Active Substance: LORAZEPAM
     Dosage: 2 MILLIGRAM, 4 EVERY 1 DAYS
     Route: 048
  88. LORAZEPAM [Interacting]
     Active Substance: LORAZEPAM
     Dosage: 3 MILLIGRAM
     Route: 065
  89. LORAZEPAM [Interacting]
     Active Substance: LORAZEPAM
     Dosage: 5 MILLIGRAM
     Route: 065
  90. LORAZEPAM [Interacting]
     Active Substance: LORAZEPAM
     Dosage: 4 MILLIGRAM
     Route: 065
  91. LORAZEPAM [Interacting]
     Active Substance: LORAZEPAM
     Dosage: 7 MILLIGRAM
     Route: 065
  92. LORAZEPAM [Interacting]
     Active Substance: LORAZEPAM
     Dosage: 7 MILLIGRAM
     Route: 065
  93. LORAZEPAM [Interacting]
     Active Substance: LORAZEPAM
     Dosage: 6 MILLIGRAM
     Route: 065
  94. LORAZEPAM [Interacting]
     Active Substance: LORAZEPAM
     Dosage: 1 MILLIGRAM
     Route: 030
  95. LORAZEPAM [Interacting]
     Active Substance: LORAZEPAM
     Dosage: 2 MILLIGRAM
     Route: 065
  96. LORAZEPAM [Interacting]
     Active Substance: LORAZEPAM
     Dosage: 1 MILLIGRAM
     Route: 030
  97. LORAZEPAM [Interacting]
     Active Substance: LORAZEPAM
     Dosage: 1 MILLIGRAM
     Route: 030
  98. LORAZEPAM [Interacting]
     Active Substance: LORAZEPAM
     Dosage: UNK
     Route: 030
  99. LORAZEPAM [Interacting]
     Active Substance: LORAZEPAM
     Dosage: 2 MILLIGRAM
     Route: 048
  100. LORAZEPAM [Interacting]
     Active Substance: LORAZEPAM
     Dosage: UNK
     Route: 048
  101. LORAZEPAM [Interacting]
     Active Substance: LORAZEPAM
     Dosage: 1 MILLIGRAM
     Route: 065
  102. LORAZEPAM [Interacting]
     Active Substance: LORAZEPAM
     Dosage: UNK
     Route: 048
  103. LORAZEPAM [Interacting]
     Active Substance: LORAZEPAM
     Dosage: UNK
     Route: 048
  104. LORAZEPAM [Interacting]
     Active Substance: LORAZEPAM
     Dosage: UNK
     Route: 048
  105. LORAZEPAM [Interacting]
     Active Substance: LORAZEPAM
     Dosage: 2 MILLIGRAM
     Route: 048
  106. DOXEPIN [Interacting]
     Active Substance: DOXEPIN
     Indication: Major depression
     Dosage: UNK
     Route: 048
  107. DOXEPIN [Interacting]
     Active Substance: DOXEPIN
     Dosage: 150 MILLIGRAM
     Route: 048
  108. DOXEPIN [Interacting]
     Active Substance: DOXEPIN
     Dosage: 100 MILLIGRAM, 1 EVERY 1 DAYS
     Route: 048
  109. DOXEPIN [Interacting]
     Active Substance: DOXEPIN
     Dosage: 150 MILLIGRAM, 1 EVERY 1 DAYS
     Route: 048
  110. DOXEPIN [Interacting]
     Active Substance: DOXEPIN
     Dosage: 50 MILLIGRAM, 1 EVERY 1 DAYS
     Route: 048
  111. DOXEPIN [Interacting]
     Active Substance: DOXEPIN
     Dosage: 150 MILLIGRAM, 1 EVERY 1 DAYS
     Route: 048
  112. METHADONE [Interacting]
     Active Substance: METHADONE HYDROCHLORIDE
     Indication: Drug use disorder
     Dosage: 75 MILLIGRAM, 1 EVERY 1 DAYS
     Route: 048
  113. METHADONE [Interacting]
     Active Substance: METHADONE HYDROCHLORIDE
     Dosage: 50 MILLIGRAM
     Route: 065
  114. METHADONE [Interacting]
     Active Substance: METHADONE HYDROCHLORIDE
     Dosage: 60 MILLIGRAM, 1 EVERY 1 DAYS
     Route: 048
  115. METHADONE [Interacting]
     Active Substance: METHADONE HYDROCHLORIDE
     Dosage: 60 MILLIGRAM
     Route: 065
  116. METHADONE [Interacting]
     Active Substance: METHADONE HYDROCHLORIDE
     Dosage: 75 MILLIGRAM, 1 EVERY 1 DAYS
     Route: 048
  117. METHADONE [Interacting]
     Active Substance: METHADONE HYDROCHLORIDE
     Dosage: 40 MILLIGRAM
     Route: 065
  118. METHADONE [Interacting]
     Active Substance: METHADONE HYDROCHLORIDE
     Dosage: 75 MILLIGRAM, 1 EVERY 1 DAYS
     Route: 048
  119. METHADONE [Interacting]
     Active Substance: METHADONE HYDROCHLORIDE
     Dosage: 75 MILLIGRAM
     Route: 048
  120. METHADONE [Interacting]
     Active Substance: METHADONE HYDROCHLORIDE
     Dosage: 75 MILLIGRAM, 1 EVERY 1 DAYS
     Route: 048
  121. METHADONE [Interacting]
     Active Substance: METHADONE HYDROCHLORIDE
     Dosage: 40 MILLIGRAM
     Route: 048
  122. METHADONE [Interacting]
     Active Substance: METHADONE HYDROCHLORIDE
     Dosage: 60 MILLIGRAM, 1 EVERY 1 DAYS
     Route: 065
  123. METHADONE [Interacting]
     Active Substance: METHADONE HYDROCHLORIDE
     Dosage: 50 MILLIGRAM, 1 EVERY 1 DAY
     Route: 065
  124. METHADONE [Interacting]
     Active Substance: METHADONE HYDROCHLORIDE
     Dosage: UNK
     Route: 065
  125. METHADONE [Interacting]
     Active Substance: METHADONE HYDROCHLORIDE
     Dosage: UNK
     Route: 065
  126. METHADONE [Interacting]
     Active Substance: METHADONE HYDROCHLORIDE
     Dosage: 75 MILLIGRAM, EVERY 1 DAYS
     Route: 048
  127. METHADONE [Interacting]
     Active Substance: METHADONE HYDROCHLORIDE
     Dosage: 75 MILLIGRAM
     Route: 048
  128. METHADONE [Interacting]
     Active Substance: METHADONE HYDROCHLORIDE
     Dosage: 40 MILLIGRAM
     Route: 048
  129. METHADONE [Interacting]
     Active Substance: METHADONE HYDROCHLORIDE
     Dosage: 75 MILLIGRAM
     Route: 048
  130. METHADONE [Interacting]
     Active Substance: METHADONE HYDROCHLORIDE
     Dosage: 75 MILLIGRAM
     Route: 048
  131. METHADONE [Interacting]
     Active Substance: METHADONE HYDROCHLORIDE
     Dosage: 60 MILLIGRAM
     Route: 048
  132. METHADONE [Interacting]
     Active Substance: METHADONE HYDROCHLORIDE
     Dosage: 75 MILLIGRAM
     Route: 048
  133. METHADONE [Interacting]
     Active Substance: METHADONE HYDROCHLORIDE
     Dosage: 50 MILLIGRAM
     Route: 065
  134. METHADONE [Interacting]
     Active Substance: METHADONE HYDROCHLORIDE
     Dosage: 75 MILLIGRAM
     Route: 048
  135. METHADONE [Interacting]
     Active Substance: METHADONE HYDROCHLORIDE
     Dosage: 60 MILLIGRAM
     Route: 065
  136. QUETIAPINE [Interacting]
     Active Substance: QUETIAPINE
     Indication: Major depression
     Dosage: 100 MILLIGRAM, OD (EXTENDED-RELEASE AT BEDTIME)
     Route: 048
  137. QUETIAPINE [Interacting]
     Active Substance: QUETIAPINE
     Dosage: UNK
     Route: 065
  138. QUETIAPINE [Interacting]
     Active Substance: QUETIAPINE
     Dosage: 50 MILLIGRAM, 4 EVERY 1 DAYS
     Route: 065
  139. QUETIAPINE [Interacting]
     Active Substance: QUETIAPINE
     Dosage: 100 MILLIGRAM
     Route: 048
  140. QUETIAPINE [Interacting]
     Active Substance: QUETIAPINE
     Dosage: UNK, PRN (AS REQUIRED)
     Route: 048
  141. QUETIAPINE [Interacting]
     Active Substance: QUETIAPINE
     Dosage: UNK, QD
     Route: 048
  142. QUETIAPINE [Interacting]
     Active Substance: QUETIAPINE
     Dosage: UNK
     Route: 048
  143. QUETIAPINE [Interacting]
     Active Substance: QUETIAPINE
     Dosage: 100 MILLIGRAM, 1 EVERY 1 DAYS
     Route: 048
  144. QUETIAPINE [Interacting]
     Active Substance: QUETIAPINE
     Dosage: 100 MILLIGRAM, 1 EVERY 1 DAYS
     Route: 048
  145. QUETIAPINE [Interacting]
     Active Substance: QUETIAPINE
     Dosage: UNK
     Route: 065
  146. QUETIAPINE [Interacting]
     Active Substance: QUETIAPINE
     Dosage: 50 MILLIGRAM, 1 EVERY .2 DAYS
     Route: 065
  147. QUETIAPINE [Interacting]
     Active Substance: QUETIAPINE
     Dosage: UNK, PRN (AS REQUIRED)
     Route: 065
  148. QUETIAPINE [Interacting]
     Active Substance: QUETIAPINE
     Dosage: UNK, EVERY 1 DAYS
     Route: 048
  149. QUETIAPINE [Interacting]
     Active Substance: QUETIAPINE
     Dosage: 100 MILLIGRAM
     Route: 048
  150. QUETIAPINE [Interacting]
     Active Substance: QUETIAPINE
     Dosage: UNK
     Route: 065
  151. QUETIAPINE [Interacting]
     Active Substance: QUETIAPINE
     Dosage: 100 MILLIGRAM
     Route: 048
  152. QUETIAPINE [Interacting]
     Active Substance: QUETIAPINE
     Dosage: 50 MILLIGRAM
     Route: 065
  153. QUETIAPINE [Interacting]
     Active Substance: QUETIAPINE
     Dosage: UNK
     Route: 065
  154. QUETIAPINE [Interacting]
     Active Substance: QUETIAPINE
     Dosage: 50 MILLIGRAM
     Route: 065
  155. QUETIAPINE [Interacting]
     Active Substance: QUETIAPINE
     Dosage: UNK
     Route: 048
  156. FLUOXETINE [Interacting]
     Active Substance: FLUOXETINE HYDROCHLORIDE
     Indication: Major depression
     Dosage: 20 MILLIGRAM, 1 EVERY 1 DAYS
     Route: 048
  157. FLUOXETINE [Interacting]
     Active Substance: FLUOXETINE HYDROCHLORIDE
     Dosage: 20 MILLIGRAM, 1 EVERY 1 DAYS
     Route: 048
  158. FLUOXETINE [Interacting]
     Active Substance: FLUOXETINE HYDROCHLORIDE
     Dosage: 40 MILLIGRAM, 1 EVERY 1 DAYS
     Route: 048
  159. FLUOXETINE [Interacting]
     Active Substance: FLUOXETINE HYDROCHLORIDE
     Dosage: 60 MILLIGRAM, 1 EVERY 1 DAYS
     Route: 048
  160. FLUOXETINE [Interacting]
     Active Substance: FLUOXETINE HYDROCHLORIDE
     Dosage: 40 MILLIGRAM, 1 EVERY 1 DAYS
     Route: 048
  161. FLUOXETINE [Interacting]
     Active Substance: FLUOXETINE HYDROCHLORIDE
     Dosage: 80 MILLIGRAM, 1 EVERY 1 DAYS
     Route: 048
  162. FLUOXETINE [Interacting]
     Active Substance: FLUOXETINE HYDROCHLORIDE
     Dosage: 60 MILLIGRAM, 1 EVERY 1 DAYS
     Route: 048
  163. FLUOXETINE [Interacting]
     Active Substance: FLUOXETINE HYDROCHLORIDE
     Dosage: 80 MILLIGRAM
     Route: 048
  164. FLUOXETINE [Interacting]
     Active Substance: FLUOXETINE HYDROCHLORIDE
     Dosage: 60 MILLIGRAM, 1 EVERY 1 DAYS
     Route: 048
  165. FLUOXETINE [Interacting]
     Active Substance: FLUOXETINE HYDROCHLORIDE
     Dosage: 60 MILLIGRAM, 1 EVERY 1 DAYS
     Route: 048
  166. FLUOXETINE [Interacting]
     Active Substance: FLUOXETINE HYDROCHLORIDE
     Dosage: 40 MILLIGRAM, 1 EVERY 1 DAYS
     Route: 048
  167. FLUOXETINE [Interacting]
     Active Substance: FLUOXETINE HYDROCHLORIDE
     Dosage: 40 MILLIGRAM, 1 EVERY 1 DAYS
     Route: 048
  168. FLUOXETINE [Interacting]
     Active Substance: FLUOXETINE HYDROCHLORIDE
     Dosage: 20 MILLIGRAM, 1 EVERY 1 DAYS
     Route: 048
  169. FLUOXETINE [Interacting]
     Active Substance: FLUOXETINE HYDROCHLORIDE
     Dosage: 80 MILLIGRAM, 1 EVERY 1 DAYS
     Route: 048
  170. FLUOXETINE [Interacting]
     Active Substance: FLUOXETINE HYDROCHLORIDE
     Dosage: 60 MILLIGRAM
     Route: 048
  171. FLUOXETINE [Interacting]
     Active Substance: FLUOXETINE HYDROCHLORIDE
     Dosage: 20 MILLIGRAM
     Route: 048
  172. FLUOXETINE [Interacting]
     Active Substance: FLUOXETINE HYDROCHLORIDE
     Dosage: 40 MILLIGRAM
     Route: 048
  173. FLUOXETINE [Interacting]
     Active Substance: FLUOXETINE HYDROCHLORIDE
     Dosage: 40 MILLIGRAM
     Route: 048
  174. FLUOXETINE [Interacting]
     Active Substance: FLUOXETINE HYDROCHLORIDE
     Dosage: 60 MILLIGRAM
     Route: 048
  175. FLUOXETINE [Interacting]
     Active Substance: FLUOXETINE HYDROCHLORIDE
     Dosage: 60 MILLIGRAM
     Route: 048
  176. FLUOXETINE [Interacting]
     Active Substance: FLUOXETINE HYDROCHLORIDE
     Dosage: 80 MILLIGRAM
     Route: 048
  177. FLUOXETINE [Interacting]
     Active Substance: FLUOXETINE HYDROCHLORIDE
     Dosage: 40 MILLIGRAM
     Route: 048
  178. FLUOXETINE [Interacting]
     Active Substance: FLUOXETINE HYDROCHLORIDE
     Dosage: 20 MILLIGRAM
     Route: 048
  179. FLUOXETINE [Interacting]
     Active Substance: FLUOXETINE HYDROCHLORIDE
     Dosage: 60 MILLIGRAM
     Route: 048
  180. FLUOXETINE [Interacting]
     Active Substance: FLUOXETINE HYDROCHLORIDE
     Dosage: 80 MILLIGRAM
     Route: 048
  181. FLUOXETINE [Interacting]
     Active Substance: FLUOXETINE HYDROCHLORIDE
     Dosage: 60 MILLIGRAM
     Route: 048
  182. FLUOXETINE [Interacting]
     Active Substance: FLUOXETINE HYDROCHLORIDE
     Dosage: 40 MILLIGRAM
     Route: 048
  183. FLUOXETINE [Interacting]
     Active Substance: FLUOXETINE HYDROCHLORIDE
     Dosage: 20 MILLIGRAM
     Route: 048
  184. FLUOXETINE [Interacting]
     Active Substance: FLUOXETINE HYDROCHLORIDE
     Dosage: 40 MILLIGRAM
     Route: 048
  185. FLUOXETINE [Interacting]
     Active Substance: FLUOXETINE HYDROCHLORIDE
     Indication: Major depression
     Dosage: 20 MILLIGRAM, 1 EVERY 1 DAYS
     Route: 048
  186. FLUOXETINE [Interacting]
     Active Substance: FLUOXETINE HYDROCHLORIDE
     Dosage: 40 MILLIGRAM, QD
     Route: 048
  187. FLUOXETINE [Interacting]
     Active Substance: FLUOXETINE HYDROCHLORIDE
     Dosage: 60 MILLIGRAM, QD
     Route: 048
  188. FLUOXETINE [Interacting]
     Active Substance: FLUOXETINE HYDROCHLORIDE
     Dosage: 80 MILLIGRAM, QD
     Route: 048
  189. FLUOXETINE [Interacting]
     Active Substance: FLUOXETINE HYDROCHLORIDE
     Dosage: 40 MILLIGRAM, QD
     Route: 048
  190. FLUOXETINE [Interacting]
     Active Substance: FLUOXETINE HYDROCHLORIDE
     Dosage: 60 MILLIGRAM, QD
     Route: 048
  191. FLUOXETINE [Interacting]
     Active Substance: FLUOXETINE HYDROCHLORIDE
     Dosage: 80 MILLIGRAM, 1 EVERY 1 DAYS
     Route: 048
  192. FLUOXETINE [Interacting]
     Active Substance: FLUOXETINE HYDROCHLORIDE
     Dosage: 60 MILLIGRAM, 1 EVERY 1 DAYS
     Route: 048
  193. FLUOXETINE [Interacting]
     Active Substance: FLUOXETINE HYDROCHLORIDE
     Dosage: 60 MILLIGRAM, 1 EVERY 1 DAYS
     Route: 048
  194. FLUOXETINE [Interacting]
     Active Substance: FLUOXETINE HYDROCHLORIDE
     Dosage: 40 MILLIGRAM, 1 EVERY 1 DAYS
     Route: 048
  195. FLUOXETINE [Interacting]
     Active Substance: FLUOXETINE HYDROCHLORIDE
     Dosage: 40 MILLIGRAM, 1 EVERY 1 DAYS
     Route: 048
  196. FLUOXETINE [Interacting]
     Active Substance: FLUOXETINE HYDROCHLORIDE
     Dosage: 80 MILLIGRAM
     Route: 048
  197. FLUOXETINE [Interacting]
     Active Substance: FLUOXETINE HYDROCHLORIDE
     Dosage: UNK
     Route: 048
  198. FLUOXETINE [Interacting]
     Active Substance: FLUOXETINE HYDROCHLORIDE
     Dosage: UNK
     Route: 048
  199. FLUOXETINE [Interacting]
     Active Substance: FLUOXETINE HYDROCHLORIDE
     Dosage: 60 MILLIGRAM, 1 EVERY 1 DAYS
     Route: 048
  200. FLUOXETINE [Interacting]
     Active Substance: FLUOXETINE HYDROCHLORIDE
     Dosage: UNK
     Route: 048
  201. FLUOXETINE [Interacting]
     Active Substance: FLUOXETINE HYDROCHLORIDE
     Dosage: 80 MILLIGRAM
     Route: 048
  202. FLUOXETINE [Interacting]
     Active Substance: FLUOXETINE HYDROCHLORIDE
     Dosage: 40 MILLIGRAM, 1 EVERY 1 DAYS
     Route: 048
  203. FLUOXETINE [Interacting]
     Active Substance: FLUOXETINE HYDROCHLORIDE
     Dosage: UNK
     Route: 048
  204. FLUOXETINE [Interacting]
     Active Substance: FLUOXETINE HYDROCHLORIDE
     Dosage: UNK
     Route: 048
  205. FLUOXETINE [Interacting]
     Active Substance: FLUOXETINE HYDROCHLORIDE
     Dosage: 40 MILLIGRAM
     Route: 048
  206. FLUOXETINE [Interacting]
     Active Substance: FLUOXETINE HYDROCHLORIDE
     Dosage: 20 MILLIGRAM
     Route: 048
  207. FLUOXETINE [Interacting]
     Active Substance: FLUOXETINE HYDROCHLORIDE
     Dosage: 60 MILLIGRAM
     Route: 048
  208. FLUOXETINE [Interacting]
     Active Substance: FLUOXETINE HYDROCHLORIDE
     Dosage: 40 MILLIGRAM
     Route: 048
  209. FLUOXETINE [Interacting]
     Active Substance: FLUOXETINE HYDROCHLORIDE
     Dosage: 60 MILLIGRAM
     Route: 048
  210. FLUOXETINE [Interacting]
     Active Substance: FLUOXETINE HYDROCHLORIDE
     Dosage: 20 MILLIGRAM
     Route: 048
  211. FLUOXETINE [Interacting]
     Active Substance: FLUOXETINE HYDROCHLORIDE
     Dosage: 80 MILLIGRAM, 1 EVERY 1 DAYS
     Route: 048
  212. FLUOXETINE [Interacting]
     Active Substance: FLUOXETINE HYDROCHLORIDE
     Dosage: 20 MILLIGRAM, 1 EVERY 1 DAYS
     Route: 048
  213. FLUOXETINE [Interacting]
     Active Substance: FLUOXETINE HYDROCHLORIDE
     Dosage: 60 MILLIGRAM
     Route: 048
  214. FLUOXETINE [Interacting]
     Active Substance: FLUOXETINE HYDROCHLORIDE
     Dosage: 60 MILLIGRAM
     Route: 048
  215. FLUOXETINE [Interacting]
     Active Substance: FLUOXETINE HYDROCHLORIDE
     Dosage: 40 MILLIGRAM (EVERY 1 DAYS)
     Route: 048
  216. FLUOXETINE [Interacting]
     Active Substance: FLUOXETINE HYDROCHLORIDE
     Dosage: 60 MILLIGRAM (EVERY 1 DAYS)
     Route: 048
  217. FLUOXETINE [Interacting]
     Active Substance: FLUOXETINE HYDROCHLORIDE
     Dosage: 80 MILLIGRAM
     Route: 048
  218. FLUOXETINE [Interacting]
     Active Substance: FLUOXETINE HYDROCHLORIDE
     Dosage: 40 MILLIGRAM
     Route: 048
  219. FLUOXETINE [Interacting]
     Active Substance: FLUOXETINE HYDROCHLORIDE
     Dosage: 80 MILLIGRAM
     Route: 048
  220. FLUOXETINE [Interacting]
     Active Substance: FLUOXETINE HYDROCHLORIDE
     Dosage: 40 MILLIGRAM
     Route: 048
  221. FLUOXETINE [Interacting]
     Active Substance: FLUOXETINE HYDROCHLORIDE
     Dosage: 20 MILLIGRAM
     Route: 048
  222. FLUOXETINE [Interacting]
     Active Substance: FLUOXETINE HYDROCHLORIDE
     Dosage: 20 MILLIGRAM
     Route: 048
  223. FLUOXETINE [Interacting]
     Active Substance: FLUOXETINE HYDROCHLORIDE
     Dosage: UNK
     Route: 048
  224. FLUOXETINE [Interacting]
     Active Substance: FLUOXETINE HYDROCHLORIDE
     Dosage: 20 MILLIGRAM
     Route: 048
  225. FLUOXETINE [Interacting]
     Active Substance: FLUOXETINE HYDROCHLORIDE
     Dosage: 60 MILLIGRAM
     Route: 048
  226. FLUOXETINE [Interacting]
     Active Substance: FLUOXETINE HYDROCHLORIDE
     Dosage: 60 MILLIGRAM
     Route: 048
  227. FLUOXETINE [Interacting]
     Active Substance: FLUOXETINE HYDROCHLORIDE
     Dosage: 60 MILLIGRAM (EVERY 1 DAYS)
     Route: 048
  228. FLUOXETINE [Interacting]
     Active Substance: FLUOXETINE HYDROCHLORIDE
     Dosage: 20 MILLIGRAM
     Route: 048
  229. FLUOXETINE [Interacting]
     Active Substance: FLUOXETINE HYDROCHLORIDE
     Dosage: 40 MILLIGRAM (EVERY 1 DAYS)
     Route: 048
  230. FLUOXETINE [Interacting]
     Active Substance: FLUOXETINE HYDROCHLORIDE
     Dosage: 80 MILLIGRAM (EVERY 1 DAYS)
     Route: 048
  231. FLUOXETINE [Interacting]
     Active Substance: FLUOXETINE HYDROCHLORIDE
     Dosage: 40 MILLIGRAM
     Route: 048
  232. FLUOXETINE [Interacting]
     Active Substance: FLUOXETINE HYDROCHLORIDE
     Dosage: 40 MILLIGRAM
     Route: 048
  233. FLUOXETINE [Interacting]
     Active Substance: FLUOXETINE HYDROCHLORIDE
     Dosage: 80 MILLIGRAM
     Route: 048
  234. DIVALPROEX SODIUM [Interacting]
     Active Substance: DIVALPROEX SODIUM
     Indication: Affective disorder
     Dosage: UNK
     Route: 048
  235. DIVALPROEX SODIUM [Interacting]
     Active Substance: DIVALPROEX SODIUM
     Indication: Mania
     Dosage: 750 MILLIGRAM
     Route: 048
  236. DIVALPROEX SODIUM [Interacting]
     Active Substance: DIVALPROEX SODIUM
     Dosage: 250 MILLIGRAM
     Route: 048
  237. DIVALPROEX SODIUM [Interacting]
     Active Substance: DIVALPROEX SODIUM
     Dosage: 500 MILLIGRAM, HS
     Route: 048
  238. DIVALPROEX SODIUM [Interacting]
     Active Substance: DIVALPROEX SODIUM
     Dosage: 250 MILLIGRAM, AM
     Route: 048
  239. DIVALPROEX SODIUM [Interacting]
     Active Substance: DIVALPROEX SODIUM
     Dosage: 500 MILLIGRAM
     Route: 048
  240. RISPERDAL [Interacting]
     Active Substance: RISPERIDONE
     Indication: Affective disorder
     Dosage: 1 MILLIGRAM, 1 EVERY 1 DAYS
     Route: 048
  241. RISPERDAL [Interacting]
     Active Substance: RISPERIDONE
     Dosage: 0.25 MILLIGRAM, 4.0 DAYS
     Route: 048
  242. RISPERDAL [Interacting]
     Active Substance: RISPERIDONE
     Dosage: 1 MILLIGRAM, EVERY 1 DAYS
     Route: 048
  243. RISPERDAL [Interacting]
     Active Substance: RISPERIDONE
     Dosage: 1 MILLIGRAM
     Route: 048
  244. RISPERDAL [Interacting]
     Active Substance: RISPERIDONE
     Dosage: 1 MILLIGRAM
     Route: 048
  245. RISPERDAL [Interacting]
     Active Substance: RISPERIDONE
     Dosage: 1 MILLIGRAM
     Route: 048
  246. RISPERDAL [Interacting]
     Active Substance: RISPERIDONE
     Dosage: 0.25 MILLIGRAM
     Route: 048
  247. RISPERDAL [Interacting]
     Active Substance: RISPERIDONE
     Dosage: 1 MILLIGRAM
     Route: 048
  248. DOXEPIN HYDROCHLORIDE [Interacting]
     Active Substance: DOXEPIN HYDROCHLORIDE
     Indication: Major depression
     Dosage: 150 MILLIGRAM, 1 EVERY 1 DAYS
     Route: 048
  249. DOXEPIN HYDROCHLORIDE [Interacting]
     Active Substance: DOXEPIN HYDROCHLORIDE
     Dosage: 50 MILLIGRAM, 1 EVERY 1 DAYS
     Route: 048
  250. DOXEPIN HYDROCHLORIDE [Interacting]
     Active Substance: DOXEPIN HYDROCHLORIDE
     Dosage: 100 MILLIGRAM, 1 EVERY 1 DAYS
     Route: 048
  251. DOXEPIN HYDROCHLORIDE [Interacting]
     Active Substance: DOXEPIN HYDROCHLORIDE
     Dosage: 150 MILLIGRAM, 1 EVERY 1 DAYS
     Route: 048
  252. DOXEPIN HYDROCHLORIDE [Interacting]
     Active Substance: DOXEPIN HYDROCHLORIDE
     Dosage: 150 MILLIGRAM
     Route: 048
  253. DOXEPIN HYDROCHLORIDE [Interacting]
     Active Substance: DOXEPIN HYDROCHLORIDE
     Dosage: 150 MILLIGRAM, 1 EVERY 1 DAYS
     Route: 048
  254. DOXEPIN HYDROCHLORIDE [Interacting]
     Active Substance: DOXEPIN HYDROCHLORIDE
     Dosage: 100 MILLIGRAM, 1 EVERY 1 DAYS
     Route: 048
  255. DOXEPIN HYDROCHLORIDE [Interacting]
     Active Substance: DOXEPIN HYDROCHLORIDE
     Dosage: 50 MILLIGRAM, 1 EVERY 1 DAYS
     Route: 048
  256. DOXEPIN HYDROCHLORIDE [Interacting]
     Active Substance: DOXEPIN HYDROCHLORIDE
     Dosage: 100 MILLIGRAM, EVERY 1 DAYS
     Route: 048
  257. DOXEPIN HYDROCHLORIDE [Interacting]
     Active Substance: DOXEPIN HYDROCHLORIDE
     Dosage: 50 MILLIGRAM
     Route: 048
  258. DOXEPIN HYDROCHLORIDE [Interacting]
     Active Substance: DOXEPIN HYDROCHLORIDE
     Dosage: 100 MILLIGRAM
     Route: 048
  259. DOXEPIN HYDROCHLORIDE [Interacting]
     Active Substance: DOXEPIN HYDROCHLORIDE
     Dosage: 50 MILLIGRAM, EVERY 1 DAYS
     Route: 048
  260. QUETIAPINE FUMARATE [Interacting]
     Active Substance: QUETIAPINE FUMARATE
     Indication: Major depression
     Dosage: UNK
     Route: 048
  261. QUETIAPINE FUMARATE [Interacting]
     Active Substance: QUETIAPINE FUMARATE
     Dosage: UNK
     Route: 065
  262. QUETIAPINE FUMARATE [Interacting]
     Active Substance: QUETIAPINE FUMARATE
     Dosage: 100 MILLIGRAM, 1 EVERY 1 DAYS
     Route: 048
  263. QUETIAPINE FUMARATE [Interacting]
     Active Substance: QUETIAPINE FUMARATE
     Dosage: 100 MILLIGRAM
     Route: 048
  264. QUETIAPINE FUMARATE [Interacting]
     Active Substance: QUETIAPINE FUMARATE
     Indication: Major depression
     Dosage: 100 MILLIGRAM, 1 EVERY 1 DAYS
     Route: 048
  265. QUETIAPINE FUMARATE [Interacting]
     Active Substance: QUETIAPINE FUMARATE
     Dosage: 100 MILLIGRAM, 1 EVERY 1 DAYS
     Route: 048
  266. QUETIAPINE FUMARATE [Interacting]
     Active Substance: QUETIAPINE FUMARATE
     Dosage: UNK
     Route: 048
  267. QUETIAPINE FUMARATE [Interacting]
     Active Substance: QUETIAPINE FUMARATE
     Dosage: UNK
     Route: 065
  268. QUETIAPINE FUMARATE [Interacting]
     Active Substance: QUETIAPINE FUMARATE
     Dosage: UNK
     Route: 065
  269. QUETIAPINE FUMARATE [Interacting]
     Active Substance: QUETIAPINE FUMARATE
     Dosage: UNK
     Route: 065
  270. QUETIAPINE FUMARATE [Interacting]
     Active Substance: QUETIAPINE FUMARATE
     Dosage: UNK
     Route: 048
  271. QUETIAPINE FUMARATE [Interacting]
     Active Substance: QUETIAPINE FUMARATE
     Dosage: 100 MILLIGRAM
     Route: 048
  272. QUETIAPINE FUMARATE [Interacting]
     Active Substance: QUETIAPINE FUMARATE
     Dosage: 50 MILLIGRAM, 4 EVERY 1 DAYS
     Route: 048
  273. QUETIAPINE FUMARATE [Interacting]
     Active Substance: QUETIAPINE FUMARATE
     Dosage: UNK
     Route: 048
  274. QUETIAPINE FUMARATE [Interacting]
     Active Substance: QUETIAPINE FUMARATE
     Dosage: UNK
     Route: 048
  275. QUETIAPINE FUMARATE [Interacting]
     Active Substance: QUETIAPINE FUMARATE
     Dosage: UNK
     Route: 065
  276. QUETIAPINE FUMARATE [Interacting]
     Active Substance: QUETIAPINE FUMARATE
     Dosage: 100 MILLIGRAM, EVERY 1 DAYS
     Route: 048
  277. QUETIAPINE FUMARATE [Interacting]
     Active Substance: QUETIAPINE FUMARATE
     Dosage: UNK
     Route: 065
  278. QUETIAPINE FUMARATE [Interacting]
     Active Substance: QUETIAPINE FUMARATE
     Dosage: UNK
     Route: 065
  279. DOXEPIN [Interacting]
     Active Substance: DOXEPIN
     Indication: Major depression
     Dosage: 50 MILLIGRAM, QD
     Route: 048
  280. DOXEPIN [Interacting]
     Active Substance: DOXEPIN
     Dosage: 100 MILLIGRAM
     Route: 048
  281. DOXEPIN [Interacting]
     Active Substance: DOXEPIN
     Dosage: 100 MILLIGRAM,  1 EVERY 1 DAYS
     Route: 048
  282. DOXEPIN [Interacting]
     Active Substance: DOXEPIN
     Dosage: 150 MILLIGRAM, EVERY 1 DAYS
     Route: 048
  283. DOXEPIN [Interacting]
     Active Substance: DOXEPIN
     Dosage: 150 MILLIGRAM
     Route: 048
  284. DOXEPIN [Interacting]
     Active Substance: DOXEPIN
     Dosage: 150 MILLIGRAM, EVERY 1 DAYS
     Route: 048
  285. DOXEPIN [Interacting]
     Active Substance: DOXEPIN
     Dosage: 100 MILLIGRAM,  1 EVERY 1 DAYS
     Route: 048
  286. DOXEPIN [Interacting]
     Active Substance: DOXEPIN
     Dosage: UNK
     Route: 048
  287. DOXEPIN [Interacting]
     Active Substance: DOXEPIN
     Dosage: 150 MILLIGRAM, 1 EVERY 1 DAYS
     Route: 048
  288. DOXEPIN [Interacting]
     Active Substance: DOXEPIN
     Dosage: 50 MILLIGRAM, 1 EVERY 1 DAYS
     Route: 048
  289. DOXEPIN [Interacting]
     Active Substance: DOXEPIN
     Dosage: 50 MILLIGRAM, 1 EVERY 1 DAYS
     Route: 048
  290. DOXEPIN [Interacting]
     Active Substance: DOXEPIN
     Dosage: 150 MILLIGRAM, 1 EVERY 1 DAYS
     Route: 048
  291. DOXEPIN [Interacting]
     Active Substance: DOXEPIN
     Dosage: 150 MILLIGRAM, EVERY 1 DAYS
     Route: 048
  292. DOXEPIN [Interacting]
     Active Substance: DOXEPIN
     Dosage: 100 MILLIGRAM,  1 EVERY 1 DAYS
     Route: 048
  293. DOXEPIN [Interacting]
     Active Substance: DOXEPIN
     Dosage: 150 MILLIGRAM, 1 EVERY 1 DAYS
     Route: 048
  294. DOXEPIN [Interacting]
     Active Substance: DOXEPIN
     Dosage: 100 MILLIGRAM, 1 EVERY 1 DAYS
     Route: 048
  295. DOXEPIN [Interacting]
     Active Substance: DOXEPIN
     Dosage: 50 MILLIGRAM, 1 EVERY 1 DAYS
     Route: 048
  296. DOXEPIN [Interacting]
     Active Substance: DOXEPIN
     Dosage: 150 MILLIGRAM, 1 EVERY 1 DAYS
     Route: 048
  297. DOXEPIN [Interacting]
     Active Substance: DOXEPIN
     Dosage: 100 MILLIGRAM, 1 EVERY 1 DAYS
     Route: 048
  298. DOXEPIN [Interacting]
     Active Substance: DOXEPIN
     Dosage: 150 MILLIGRAM, 1 EVERY 1 DAYS
     Route: 048
  299. DOXEPIN [Interacting]
     Active Substance: DOXEPIN
     Dosage: 150 MILLIGRAM, 1 EVERY 1 DAYS
     Route: 048
  300. DOXEPIN [Interacting]
     Active Substance: DOXEPIN
     Dosage: 50 MILLIGRAM, 1 EVERY 1 DAYS
     Route: 048
  301. DOXEPIN [Interacting]
     Active Substance: DOXEPIN
     Dosage: 50 MILLIGRAM, 1 EVERY 1 DAYS
     Route: 048
  302. DOXEPIN [Interacting]
     Active Substance: DOXEPIN
     Dosage: 150 MILLIGRAM, 1 EVERY 1 DAYS
     Route: 048
  303. DOXEPIN [Interacting]
     Active Substance: DOXEPIN
     Dosage: 50 MILLIGRAM, 1 EVERY 1 DAYS
     Route: 048
  304. DOXEPIN [Interacting]
     Active Substance: DOXEPIN
     Dosage: 150 MILLIGRAM
     Route: 048
  305. DOXEPIN [Interacting]
     Active Substance: DOXEPIN
     Dosage: 50 MILLIGRAM, 1 EVERY 1 DAYS
     Route: 065
  306. DOXEPIN [Interacting]
     Active Substance: DOXEPIN
     Dosage: 100 MILLIGRAM, 1 EVERY 1 DAYS
     Route: 048
  307. DOXEPIN [Interacting]
     Active Substance: DOXEPIN
     Dosage: 150 MILLIGRAM, 1 EVERY 1 DAYS
     Route: 048
  308. DOXEPIN [Interacting]
     Active Substance: DOXEPIN
     Dosage: 150 MILLIGRAM, 1 EVERY 1 DAYS
     Route: 048
  309. DOXEPIN [Interacting]
     Active Substance: DOXEPIN
     Dosage: 100 MILLIGRAM,
     Route: 048
  310. DOXEPIN [Interacting]
     Active Substance: DOXEPIN
     Dosage: UNK
     Route: 048
  311. DOXEPIN [Interacting]
     Active Substance: DOXEPIN
     Dosage: 150 MILLIGRAM, 1 EVERY 1 DAYS
     Route: 065
  312. DOXEPIN [Interacting]
     Active Substance: DOXEPIN
     Dosage: 100 MILLIGRAM, 1 EVERY 1 DAYS
     Route: 048
  313. DOXEPIN [Interacting]
     Active Substance: DOXEPIN
     Dosage: 150 MILLIGRAM
     Route: 048
  314. DOXEPIN [Interacting]
     Active Substance: DOXEPIN
     Dosage: 150 MILLIGRAM, 1 EVERY 1 DAYS
     Route: 048
  315. DOXEPIN [Interacting]
     Active Substance: DOXEPIN
     Dosage: 150 MILLIGRAM, 1 EVERY 1 DAYS
     Route: 048
  316. DOXEPIN [Interacting]
     Active Substance: DOXEPIN
     Dosage: 150 MILLIGRAM, 1 EVERY 1 DAYS
     Route: 048
  317. DOXEPIN [Interacting]
     Active Substance: DOXEPIN
     Dosage: 50 MILLIGRAM
     Route: 048
  318. DOXEPIN [Interacting]
     Active Substance: DOXEPIN
     Dosage: 100 MILLIGRAM
     Route: 048
  319. DOXEPIN [Interacting]
     Active Substance: DOXEPIN
     Dosage: 150 MILLIGRAM
     Route: 065
  320. DOXEPIN [Interacting]
     Active Substance: DOXEPIN
     Dosage: EVERY 1 DAYS
     Route: 065
  321. QUETIAPINE [Interacting]
     Active Substance: QUETIAPINE
     Indication: Major depression
     Dosage: 100 MILLIGRAM, 1 EVERY 1 DAYS
     Route: 048
  322. QUETIAPINE [Interacting]
     Active Substance: QUETIAPINE
     Dosage: UNK
     Route: 065
  323. QUETIAPINE [Interacting]
     Active Substance: QUETIAPINE
     Dosage: UNK, EVERY 1 DAYS
     Route: 048
  324. QUETIAPINE [Interacting]
     Active Substance: QUETIAPINE
     Dosage: UNK, PRN (25 TO 50 MG IMMEDIATE-RELEASE 4 TIMES DAILY AS NEEDED)
     Route: 065
  325. QUETIAPINE [Interacting]
     Active Substance: QUETIAPINE
     Dosage: UNK
     Route: 065
  326. QUETIAPINE [Interacting]
     Active Substance: QUETIAPINE
     Dosage: UNK
     Route: 065
  327. QUETIAPINE [Interacting]
     Active Substance: QUETIAPINE
     Dosage: UNK
     Route: 048
  328. QUETIAPINE [Interacting]
     Active Substance: QUETIAPINE
     Dosage: UNK, EVERY 1 DAYS
     Route: 048
  329. QUETIAPINE [Interacting]
     Active Substance: QUETIAPINE
     Dosage: 50 MILLIGRAM, 4 EVERY 1 DAYS
     Route: 065
  330. QUETIAPINE [Interacting]
     Active Substance: QUETIAPINE
     Dosage: 100 MILLIGRAM, EVERY 1 DAYS
     Route: 048
  331. QUETIAPINE [Interacting]
     Active Substance: QUETIAPINE
     Dosage: UNK
     Route: 048
  332. QUETIAPINE [Interacting]
     Active Substance: QUETIAPINE
     Dosage: UNK
     Route: 065
  333. QUETIAPINE [Interacting]
     Active Substance: QUETIAPINE
     Dosage: UNK
     Route: 048
  334. QUETIAPINE [Interacting]
     Active Substance: QUETIAPINE
     Dosage: 50 MILLIGRAM
     Route: 065
  335. QUETIAPINE [Interacting]
     Active Substance: QUETIAPINE
     Dosage: UNK
     Route: 048
  336. QUETIAPINE [Interacting]
     Active Substance: QUETIAPINE
     Dosage: 100 MILLIGRAM
     Route: 048
  337. QUETIAPINE [Interacting]
     Active Substance: QUETIAPINE
     Dosage: UNK
     Route: 065
  338. DOXEPIN [Interacting]
     Active Substance: DOXEPIN
     Indication: Major depression
     Dosage: 100 MILLIGRAM, QD
     Route: 048
  339. DOXEPIN [Interacting]
     Active Substance: DOXEPIN
     Dosage: 150 MILLIGRAM, QD
     Route: 048
  340. DOXEPIN [Interacting]
     Active Substance: DOXEPIN
     Dosage: UNK
     Route: 048
  341. DOXEPIN [Interacting]
     Active Substance: DOXEPIN
     Dosage: 150 MILLIGRAM
     Route: 048
  342. DOXEPIN [Interacting]
     Active Substance: DOXEPIN
     Dosage: 50 MILLIGRAM,  1 EVERY 1 DAYS
     Route: 048
  343. DOXEPIN [Interacting]
     Active Substance: DOXEPIN
     Dosage: 150 MILLIGRAM
     Route: 048
  344. DOXEPIN [Interacting]
     Active Substance: DOXEPIN
     Dosage: 50 MILLIGRAM
     Route: 065
  345. DOXEPIN [Interacting]
     Active Substance: DOXEPIN
     Dosage: 100 MILLIGRAM
     Route: 048
  346. DIVALPROEX SODIUM [Suspect]
     Active Substance: DIVALPROEX SODIUM
     Indication: Affective disorder
     Dosage: 250 MILLIGRAM, 1 EVERY 1 DAYS
     Route: 048
  347. DIVALPROEX SODIUM [Suspect]
     Active Substance: DIVALPROEX SODIUM
     Indication: Mania
     Dosage: 500 MILLIGRAM, 1 EVERY 1 DAYS
     Route: 048
  348. DIVALPROEX SODIUM [Suspect]
     Active Substance: DIVALPROEX SODIUM
     Dosage: UNK UNK, QD
     Route: 048
  349. DIVALPROEX SODIUM [Suspect]
     Active Substance: DIVALPROEX SODIUM
     Dosage: UNK UNK, QD
     Route: 048
  350. DIVALPROEX SODIUM [Suspect]
     Active Substance: DIVALPROEX SODIUM
     Dosage: UNK UNK, QD
     Route: 048
  351. DIVALPROEX SODIUM [Suspect]
     Active Substance: DIVALPROEX SODIUM
     Dosage: UNK
     Route: 048
  352. DIVALPROEX SODIUM [Suspect]
     Active Substance: DIVALPROEX SODIUM
     Dosage: 250 MILLIGRAM
     Route: 048
  353. DIVALPROEX SODIUM [Suspect]
     Active Substance: DIVALPROEX SODIUM
     Dosage: 250 MILLIGRAM, 1 EVERY 1 DAYS
     Route: 048
  354. DIVALPROEX SODIUM [Suspect]
     Active Substance: DIVALPROEX SODIUM
     Dosage: 500 MILLIGRAM, 1 EVERY 1 DAYS
     Route: 048
  355. DIVALPROEX SODIUM [Suspect]
     Active Substance: DIVALPROEX SODIUM
     Dosage: UNK
     Route: 065
  356. DIVALPROEX SODIUM [Suspect]
     Active Substance: DIVALPROEX SODIUM
     Dosage: UNK
     Route: 048
  357. DIVALPROEX SODIUM [Suspect]
     Active Substance: DIVALPROEX SODIUM
     Dosage: 750 MILLIGRAM
     Route: 048
  358. DIVALPROEX SODIUM [Suspect]
     Active Substance: DIVALPROEX SODIUM
     Dosage: 250 MILLIGRAM
     Route: 048
  359. DIVALPROEX SODIUM [Suspect]
     Active Substance: DIVALPROEX SODIUM
     Dosage: 500 MILLIGRAM
     Route: 048
  360. DIVALPROEX SODIUM [Suspect]
     Active Substance: DIVALPROEX SODIUM
     Dosage: 250 MILLIGRAM, EVERY 1 DAYS
     Route: 048
  361. DIVALPROEX SODIUM [Suspect]
     Active Substance: DIVALPROEX SODIUM
     Dosage: 500 MILLIGRAM, EVERY 1 DAYS
     Route: 048
  362. DIVALPROEX SODIUM [Suspect]
     Active Substance: DIVALPROEX SODIUM
     Dosage: 750 MILLIGRAM
     Route: 065
  363. DIVALPROEX SODIUM [Suspect]
     Active Substance: DIVALPROEX SODIUM
     Dosage: UNK
     Route: 048
  364. DIVALPROEX SODIUM [Suspect]
     Active Substance: DIVALPROEX SODIUM
     Dosage: UNK
     Route: 048
  365. DIVALPROEX SODIUM [Suspect]
     Active Substance: DIVALPROEX SODIUM
     Dosage: UNK
     Route: 048
  366. DIVALPROEX SODIUM [Suspect]
     Active Substance: DIVALPROEX SODIUM
     Dosage: UNK
     Route: 048
  367. DIVALPROEX SODIUM [Suspect]
     Active Substance: DIVALPROEX SODIUM
     Dosage: UNK
     Route: 048
  368. DIVALPROEX SODIUM [Suspect]
     Active Substance: DIVALPROEX SODIUM
     Dosage: UNK
     Route: 048
  369. DIVALPROEX SODIUM [Suspect]
     Active Substance: DIVALPROEX SODIUM
     Dosage: UNK
     Route: 048
  370. DIVALPROEX SODIUM [Suspect]
     Active Substance: DIVALPROEX SODIUM
     Dosage: UNK
     Route: 048
  371. DIVALPROEX SODIUM [Suspect]
     Active Substance: DIVALPROEX SODIUM
     Dosage: 750 MILLIGRAM, 1 EVERY 1 DAYS
     Route: 048
  372. DIVALPROEX SODIUM [Suspect]
     Active Substance: DIVALPROEX SODIUM
     Dosage: 250 MILLIGRAM
     Route: 048
  373. DIVALPROEX SODIUM [Suspect]
     Active Substance: DIVALPROEX SODIUM
     Dosage: 250 MILLIGRAM
     Route: 048
  374. DIVALPROEX SODIUM [Suspect]
     Active Substance: DIVALPROEX SODIUM
     Dosage: 250 MILLIGRAM, EVERY 1 DAYS
     Route: 048
  375. DIVALPROEX SODIUM [Suspect]
     Active Substance: DIVALPROEX SODIUM
     Dosage: 250 MILLIGRAM, EVERY 1 DAYS
     Route: 048
  376. DIVALPROEX SODIUM [Suspect]
     Active Substance: DIVALPROEX SODIUM
     Dosage: 500 MILLIGRAM
     Route: 048
  377. DIVALPROEX SODIUM [Suspect]
     Active Substance: DIVALPROEX SODIUM
     Dosage: 500 MILLIGRAM, 1 EVERY 1 DAYS
     Route: 048
  378. DIVALPROEX SODIUM [Suspect]
     Active Substance: DIVALPROEX SODIUM
     Dosage: UNK (EVERY ONE DAY)
     Route: 048
  379. DIVALPROEX SODIUM [Suspect]
     Active Substance: DIVALPROEX SODIUM
     Dosage: 500 MILLIGRAM
     Route: 048
  380. DIVALPROEX SODIUM [Suspect]
     Active Substance: DIVALPROEX SODIUM
     Dosage: 250 MILLIGRAM
     Route: 048
  381. DIVALPROEX SODIUM [Suspect]
     Active Substance: DIVALPROEX SODIUM
     Dosage: 250 MILLIGRAM
     Route: 048
  382. DIVALPROEX SODIUM [Suspect]
     Active Substance: DIVALPROEX SODIUM
     Dosage: 750 MILLIGRAM
     Route: 048
  383. DIVALPROEX SODIUM [Suspect]
     Active Substance: DIVALPROEX SODIUM
     Dosage: UNK (EVERY 1 DAYS)
     Route: 048
  384. DIVALPROEX SODIUM [Suspect]
     Active Substance: DIVALPROEX SODIUM
     Dosage: 500 MILLIGRAM
     Route: 048
  385. DIVALPROEX SODIUM [Suspect]
     Active Substance: DIVALPROEX SODIUM
     Dosage: 250 MILLIGRAM
     Route: 048
  386. DIVALPROEX SODIUM [Suspect]
     Active Substance: DIVALPROEX SODIUM
     Dosage: 250 MILLIGRAM
     Route: 048
  387. DIVALPROEX SODIUM [Suspect]
     Active Substance: DIVALPROEX SODIUM
     Dosage: 250 MILLIGRAM
     Route: 048
  388. DIVALPROEX SODIUM [Suspect]
     Active Substance: DIVALPROEX SODIUM
     Dosage: 250 MILLIGRAM
     Route: 048
  389. DIVALPROEX SODIUM [Suspect]
     Active Substance: DIVALPROEX SODIUM
     Dosage: 750 MILLIGRAM
     Route: 048
  390. DIVALPROEX SODIUM [Suspect]
     Active Substance: DIVALPROEX SODIUM
     Dosage: 500 MILLIGRAM
     Route: 048
  391. DIVALPROEX SODIUM [Suspect]
     Active Substance: DIVALPROEX SODIUM
     Dosage: 750 MILLIGRAM
     Route: 048
  392. DIVALPROEX SODIUM [Suspect]
     Active Substance: DIVALPROEX SODIUM
     Dosage: 500 MILLIGRAM
     Route: 048
  393. DIVALPROEX SODIUM [Suspect]
     Active Substance: DIVALPROEX SODIUM
     Dosage: 500 MILLIGRAM
     Route: 048
  394. DIVALPROEX SODIUM [Suspect]
     Active Substance: DIVALPROEX SODIUM
     Dosage: 750 MILLIGRAM
     Route: 065
  395. DIVALPROEX SODIUM [Suspect]
     Active Substance: DIVALPROEX SODIUM
     Dosage: 500 MILLIGRAM
     Route: 048
  396. DIVALPROEX SODIUM [Suspect]
     Active Substance: DIVALPROEX SODIUM
     Indication: Affective disorder
     Dosage: 500 MILLIGRAM, 1 EVERY 1 DAY
     Route: 048
  397. DIVALPROEX SODIUM [Suspect]
     Active Substance: DIVALPROEX SODIUM
     Indication: Mania
     Dosage: 500 MILLIGRAM
     Route: 048
  398. DIVALPROEX SODIUM [Suspect]
     Active Substance: DIVALPROEX SODIUM
     Dosage: UNK
     Route: 065
  399. DIVALPROEX SODIUM [Suspect]
     Active Substance: DIVALPROEX SODIUM
     Indication: Affective disorder
     Dosage: 250.0 MILLIGRAM,1 EVERY 1 DAYS
     Route: 048
  400. DIVALPROEX SODIUM [Suspect]
     Active Substance: DIVALPROEX SODIUM
     Dosage: 250.0 MILLIGRAM,1 EVERY 1 DAYS
     Route: 048
  401. DIVALPROEX SODIUM [Suspect]
     Active Substance: DIVALPROEX SODIUM
     Dosage: 500 MILLIGRAM,1 EVERY 1 DAYS
     Route: 048
  402. DIVALPROEX SODIUM [Suspect]
     Active Substance: DIVALPROEX SODIUM
     Dosage: 750 MILLIGRAM,1 EVERY 1 DAYS
     Route: 048
  403. DIVALPROEX SODIUM [Suspect]
     Active Substance: DIVALPROEX SODIUM
     Dosage: 250 MILLIGRAM
     Route: 048
  404. DIVALPROEX SODIUM [Suspect]
     Active Substance: DIVALPROEX SODIUM
     Dosage: 250 MILLIGRAM
     Route: 048
  405. CYCLOBENZAPRINE [Suspect]
     Active Substance: CYCLOBENZAPRINE
     Indication: Pain
     Dosage: 10 MILLIGRAM
     Route: 048
  406. CYCLOBENZAPRINE [Suspect]
     Active Substance: CYCLOBENZAPRINE
     Indication: Scoliosis
     Dosage: 10 MILLIGRAM
     Route: 048
  407. CYCLOBENZAPRINE [Suspect]
     Active Substance: CYCLOBENZAPRINE
     Dosage: 50 MILLIGRAM, 2 EVERY 1 DAYS
     Route: 048
  408. CYCLOBENZAPRINE [Suspect]
     Active Substance: CYCLOBENZAPRINE
     Dosage: 50 MILLIGRAM, 2 EVERY 1 DAYS
     Route: 048
  409. CYCLOBENZAPRINE [Suspect]
     Active Substance: CYCLOBENZAPRINE
     Dosage: 10 MILLIGRAM, 3 EVERY 1 DAYS
     Route: 048
  410. CYCLOBENZAPRINE [Suspect]
     Active Substance: CYCLOBENZAPRINE
     Dosage: 10 MILLIGRAM, 3 EVERY 1 DAYS
     Route: 048
  411. CYCLOBENZAPRINE [Suspect]
     Active Substance: CYCLOBENZAPRINE
     Dosage: 10 MILLIGRAM, 2 EVERY 1 DAYS
     Route: 048
  412. CYCLOBENZAPRINE [Suspect]
     Active Substance: CYCLOBENZAPRINE
     Dosage: 10 MILLIGRAM, 2 EVERY 1 DAYS
     Route: 048
  413. CYCLOBENZAPRINE [Suspect]
     Active Substance: CYCLOBENZAPRINE
     Dosage: 1 EVERY 1 DAYS
     Route: 048
  414. CYCLOBENZAPRINE [Suspect]
     Active Substance: CYCLOBENZAPRINE
     Dosage: 10 MILLIGRAM (1 EVERY 5 DAYS)
     Route: 048
  415. CYCLOBENZAPRINE [Suspect]
     Active Substance: CYCLOBENZAPRINE
     Dosage: 10 MILLIGRAM ( 1 EVERY 3 DAYS)
     Route: 048
  416. CYCLOBENZAPRINE [Suspect]
     Active Substance: CYCLOBENZAPRINE
     Dosage: UNK
     Route: 065
  417. METHADONE HYDROCHLORIDE [Suspect]
     Active Substance: METHADONE HYDROCHLORIDE
     Indication: Drug use disorder
     Dosage: 75.0 MILLIGRAM, 1 EVERY 1 DAYS
     Route: 048
  418. FLUOXETINE HYDROCHLORIDE [Suspect]
     Active Substance: FLUOXETINE HYDROCHLORIDE
     Indication: Major depression
     Dosage: 80 MILLIGRAM, 1 EVERY 1 DAY
     Route: 048
  419. FLUOXETINE HYDROCHLORIDE [Suspect]
     Active Substance: FLUOXETINE HYDROCHLORIDE
     Dosage: 60 MILLIGRAM, 1 EVERY 1 DAY
     Route: 048
  420. FLUOXETINE HYDROCHLORIDE [Suspect]
     Active Substance: FLUOXETINE HYDROCHLORIDE
     Dosage: 60 MILLIGRAM, 1 EVERY 1 DAY
     Route: 048
  421. FLUOXETINE HYDROCHLORIDE [Suspect]
     Active Substance: FLUOXETINE HYDROCHLORIDE
     Dosage: UNK
     Route: 048
  422. FLUOXETINE HYDROCHLORIDE [Suspect]
     Active Substance: FLUOXETINE HYDROCHLORIDE
     Dosage: 40 MILLIGRAM, 1 EVERY 1 DAY
     Route: 048
  423. FLUOXETINE HYDROCHLORIDE [Suspect]
     Active Substance: FLUOXETINE HYDROCHLORIDE
     Dosage: 60 MILLIGRAM, 1 EVERY 1 DAY
     Route: 048
  424. FLUOXETINE HYDROCHLORIDE [Suspect]
     Active Substance: FLUOXETINE HYDROCHLORIDE
     Dosage: UNK
     Route: 048
  425. FLUOXETINE HYDROCHLORIDE [Suspect]
     Active Substance: FLUOXETINE HYDROCHLORIDE
     Dosage: UNK
     Route: 048
  426. FLUOXETINE HYDROCHLORIDE [Suspect]
     Active Substance: FLUOXETINE HYDROCHLORIDE
     Dosage: 20 MILLIGRAM
     Route: 048
  427. FLUOXETINE HYDROCHLORIDE [Suspect]
     Active Substance: FLUOXETINE HYDROCHLORIDE
     Dosage: 20 MILLIGRAM, 1 EVERY 1 DAY
     Route: 048
  428. FLUOXETINE HYDROCHLORIDE [Suspect]
     Active Substance: FLUOXETINE HYDROCHLORIDE
     Dosage: 80 MILLIGRAM, 1 EVERY 1 DAY
     Route: 048
  429. FLUOXETINE HYDROCHLORIDE [Suspect]
     Active Substance: FLUOXETINE HYDROCHLORIDE
     Dosage: 40 MILLIGRAM, 1 EVERY 1 DAY
     Route: 048
  430. FLUOXETINE HYDROCHLORIDE [Suspect]
     Active Substance: FLUOXETINE HYDROCHLORIDE
     Dosage: 40 MILLIGRAM, 1 EVERY 1 DAY
     Route: 048
  431. FLUOXETINE HYDROCHLORIDE [Suspect]
     Active Substance: FLUOXETINE HYDROCHLORIDE
     Dosage: 40 MILLIGRAM, 1 EVERY 1 DAY
     Route: 048
  432. FLUOXETINE HYDROCHLORIDE [Suspect]
     Active Substance: FLUOXETINE HYDROCHLORIDE
     Dosage: 60 MILLIGRAM, 1 EVERY 1 DAY
     Route: 048
  433. FLUOXETINE HYDROCHLORIDE [Suspect]
     Active Substance: FLUOXETINE HYDROCHLORIDE
     Dosage: 60 MILLIGRAM, 1 EVERY 1 DAY
     Route: 048
  434. FLUOXETINE HYDROCHLORIDE [Suspect]
     Active Substance: FLUOXETINE HYDROCHLORIDE
     Dosage: 60 MILLIGRAM, 1 EVERY 1 DAY
     Route: 048
  435. FLUOXETINE HYDROCHLORIDE [Suspect]
     Active Substance: FLUOXETINE HYDROCHLORIDE
     Dosage: 60 MILLIGRAM, 1 EVERY 1 DAY
     Route: 048
  436. FLUOXETINE HYDROCHLORIDE [Suspect]
     Active Substance: FLUOXETINE HYDROCHLORIDE
     Dosage: 60 MILLIGRAM, 1 EVERY 1 DAY
     Route: 048
  437. FLUOXETINE HYDROCHLORIDE [Suspect]
     Active Substance: FLUOXETINE HYDROCHLORIDE
     Dosage: 20 MILLIGRAM, 1 EVERY 1 DAY
     Route: 048
  438. FLUOXETINE HYDROCHLORIDE [Suspect]
     Active Substance: FLUOXETINE HYDROCHLORIDE
     Dosage: 20 MILLIGRAM, 1 EVERY 1 DAY
     Route: 048
  439. FLUOXETINE HYDROCHLORIDE [Suspect]
     Active Substance: FLUOXETINE HYDROCHLORIDE
     Dosage: 20 MILLIGRAM, 1 EVERY 1 DAY
     Route: 048
  440. FLUOXETINE HYDROCHLORIDE [Suspect]
     Active Substance: FLUOXETINE HYDROCHLORIDE
     Dosage: 80 MILLIGRAM, 1 EVERY 1 DAY
     Route: 048
  441. FLUOXETINE HYDROCHLORIDE [Suspect]
     Active Substance: FLUOXETINE HYDROCHLORIDE
     Dosage: 40 MILLIGRAM, 1 EVERY 1 DAY
     Route: 048
  442. FLUOXETINE HYDROCHLORIDE [Suspect]
     Active Substance: FLUOXETINE HYDROCHLORIDE
     Dosage: 80 MILLIGRAM
     Route: 048
  443. FLUOXETINE HYDROCHLORIDE [Suspect]
     Active Substance: FLUOXETINE HYDROCHLORIDE
     Dosage: 80 MILLIGRAM, 1 EVERY 1 DAY
     Route: 048
  444. FLUOXETINE HYDROCHLORIDE [Suspect]
     Active Substance: FLUOXETINE HYDROCHLORIDE
     Dosage: 80 MILLIGRAM, 1 EVERY 1 DAY
     Route: 048
  445. FLUOXETINE HYDROCHLORIDE [Suspect]
     Active Substance: FLUOXETINE HYDROCHLORIDE
     Dosage: 60 MILLIGRAM, 1 EVERY 1 DAY
     Route: 048
  446. FLUOXETINE HYDROCHLORIDE [Suspect]
     Active Substance: FLUOXETINE HYDROCHLORIDE
     Dosage: 40 MILLIGRAM, 1 EVERY 1 DAY
     Route: 048
  447. FLUOXETINE HYDROCHLORIDE [Suspect]
     Active Substance: FLUOXETINE HYDROCHLORIDE
     Indication: Major depression
     Dosage: 80 MILLIGRAM, 1 EVERY 1 DAYS
     Route: 048
  448. FLUOXETINE HYDROCHLORIDE [Suspect]
     Active Substance: FLUOXETINE HYDROCHLORIDE
     Dosage: 20 MILLIGRAM, 1 EVERY 1 DAYS
     Route: 048
  449. FLUOXETINE HYDROCHLORIDE [Suspect]
     Active Substance: FLUOXETINE HYDROCHLORIDE
     Dosage: 60 MILLIGRAM, 1 EVERY 1 DAYS
     Route: 048
  450. FLUOXETINE HYDROCHLORIDE [Suspect]
     Active Substance: FLUOXETINE HYDROCHLORIDE
     Dosage: 40 MILLIGRAM, 1 EVERY 1 DAYS
     Route: 048
  451. DOXEPIN HYDROCHLORIDE [Suspect]
     Active Substance: DOXEPIN HYDROCHLORIDE
     Indication: Major depression
     Dosage: 150 MILLIGRAM
     Route: 048
  452. DOXEPIN HYDROCHLORIDE [Suspect]
     Active Substance: DOXEPIN HYDROCHLORIDE
     Dosage: 150 MILLIGRAM
     Route: 048
  453. DOXEPIN HYDROCHLORIDE [Suspect]
     Active Substance: DOXEPIN HYDROCHLORIDE
     Dosage: 100 MILLIGRAM
     Route: 048
  454. DOXEPIN HYDROCHLORIDE [Suspect]
     Active Substance: DOXEPIN HYDROCHLORIDE
     Dosage: 100 MILLIGRAM
     Route: 048
  455. DIVALPROEX SODIUM [Suspect]
     Active Substance: DIVALPROEX SODIUM
     Indication: Affective disorder
     Dosage: 500 MILLIGRAM, QD (500 MG AT BEDTIME)
     Route: 048
  456. DIVALPROEX SODIUM [Suspect]
     Active Substance: DIVALPROEX SODIUM
     Dosage: 250 MILLIGRAM, AM (250 MG IN THE MORNING)
     Route: 048
  457. FLUOXETINE HYDROCHLORIDE [Suspect]
     Active Substance: FLUOXETINE HYDROCHLORIDE
     Indication: Major depression
     Dosage: 80 MILLIGRAM
     Route: 048
  458. FLUOXETINE HYDROCHLORIDE [Suspect]
     Active Substance: FLUOXETINE HYDROCHLORIDE
     Dosage: 80 MILLIGRAM
     Route: 048
  459. FLUOXETINE HYDROCHLORIDE [Suspect]
     Active Substance: FLUOXETINE HYDROCHLORIDE
     Dosage: 40 MILLIGRAM
     Route: 048
  460. FLUOXETINE HYDROCHLORIDE [Suspect]
     Active Substance: FLUOXETINE HYDROCHLORIDE
     Dosage: 60 MILLIGRAM
     Route: 048
  461. FLUOXETINE HYDROCHLORIDE [Suspect]
     Active Substance: FLUOXETINE HYDROCHLORIDE
     Dosage: 20 MILLIGRAM
     Route: 048
  462. ESTRADIOL [Concomitant]
     Active Substance: ESTRADIOL
     Indication: Endometriosis
     Dosage: 0.5 MILLIGRAM, 1 EVERY 1 DAYS
     Route: 048
  463. ESTRADIOL [Concomitant]
     Active Substance: ESTRADIOL
     Dosage: UNK
     Route: 065
  464. ESTRADIOL [Concomitant]
     Active Substance: ESTRADIOL
     Dosage: 0.5 MILLIGRAM
     Route: 048
  465. NAPROXEN [Concomitant]
     Active Substance: NAPROXEN
     Indication: Pain
     Dosage: 500 MILLIGRAM, 2 EVERY 1 DAYS
     Route: 048
  466. NAPROXEN [Concomitant]
     Active Substance: NAPROXEN
     Dosage: 500 MILLIGRAM
     Route: 048
  467. NAPROXEN [Concomitant]
     Active Substance: NAPROXEN
     Dosage: 500 MILLIGRAM, PRN
     Route: 048
  468. NAPROXEN [Concomitant]
     Active Substance: NAPROXEN
     Dosage: UNK
     Route: 065
  469. NAPROXEN [Concomitant]
     Active Substance: NAPROXEN
     Dosage: 500 MILLIGRAM, PRN (AS REQUIRED)
     Route: 048
  470. NAPROXEN [Concomitant]
     Active Substance: NAPROXEN
     Dosage: 500 MILLIGRAM
     Route: 048
  471. NAPROXEN [Concomitant]
     Active Substance: NAPROXEN
     Dosage: 500 MILLIGRAM
     Route: 048
  472. ATENOLOL [Concomitant]
     Active Substance: ATENOLOL
     Indication: Hypertension
     Dosage: 50 MILLIGRAM, 1 EVERY 1 DAYS
     Route: 048
  473. ATENOLOL [Concomitant]
     Active Substance: ATENOLOL
     Dosage: UNK
     Route: 065
  474. ATENOLOL [Concomitant]
     Active Substance: ATENOLOL
     Dosage: 50 MILLIGRAM, 1 EVERY 1 DAYS
     Route: 048
  475. ATENOLOL [Concomitant]
     Active Substance: ATENOLOL
     Dosage: UNK
     Route: 065
  476. ATENOLOL [Concomitant]
     Active Substance: ATENOLOL
     Dosage: UNK, 1 EVERY 1 DAYS
     Route: 048
  477. ATENOLOL [Concomitant]
     Active Substance: ATENOLOL
     Dosage: UNK, 1 EVERY 1 DAYS
     Route: 048
  478. ATENOLOL [Concomitant]
     Active Substance: ATENOLOL
     Dosage: UNK
     Route: 048
  479. ATENOLOL [Concomitant]
     Active Substance: ATENOLOL
     Dosage: UNK
     Route: 048
  480. ATENOLOL [Concomitant]
     Active Substance: ATENOLOL
     Dosage: UNK
     Route: 048
  481. ATENOLOL [Concomitant]
     Active Substance: ATENOLOL
     Dosage: 50 MILLIGRAM
     Route: 048
  482. TIOTROPIUM [Concomitant]
     Active Substance: TIOTROPIUM
     Indication: Chronic obstructive pulmonary disease
     Dosage: 5 MICROGRAM, 1 EVERY 1 DAYS
  483. TIOTROPIUM [Concomitant]
     Active Substance: TIOTROPIUM
     Dosage: UNK
     Route: 065
  484. TIOTROPIUM [Concomitant]
     Active Substance: TIOTROPIUM
     Dosage: 5 MICROGRAM, 1 EVERY 1 DAYS
     Route: 055
  485. TIOTROPIUM [Concomitant]
     Active Substance: TIOTROPIUM
     Dosage: 5 MICROGRAM, 1 EVERY 1 DAYS
     Route: 065
  486. TIOTROPIUM [Concomitant]
     Active Substance: TIOTROPIUM
     Dosage: 5 MICROGRAM
  487. TIOTROPIUM [Concomitant]
     Active Substance: TIOTROPIUM
     Dosage: 5 MICROGRAM
     Route: 065
  488. TIOTROPIUM [Concomitant]
     Active Substance: TIOTROPIUM
     Dosage: 5 MICROGRAM
     Route: 065
  489. TIOTROPIUM [Concomitant]
     Active Substance: TIOTROPIUM
     Dosage: 5 MICROGRAM
     Route: 065
  490. FUROSEMIDE [Concomitant]
     Active Substance: FUROSEMIDE
     Indication: Oedema peripheral
     Dosage: 40 MILLIGRAM, PRN (ONCE DAILY)
     Route: 048
  491. FUROSEMIDE [Concomitant]
     Active Substance: FUROSEMIDE
     Dosage: UNK
     Route: 065
  492. FUROSEMIDE [Concomitant]
     Active Substance: FUROSEMIDE
     Dosage: 40 MILLIGRAM, 1 EVERY 1 DAYS
     Route: 048
  493. FUROSEMIDE [Concomitant]
     Active Substance: FUROSEMIDE
     Dosage: 40 MILLIGRAM
     Route: 048
  494. FUROSEMIDE [Concomitant]
     Active Substance: FUROSEMIDE
     Dosage: 40 MILLIGRAM, PRN (AS REQUIRED)
     Route: 048
  495. FUROSEMIDE [Concomitant]
     Active Substance: FUROSEMIDE
     Dosage: 40 MILLIGRAM
     Route: 048
  496. FUROSEMIDE [Concomitant]
     Active Substance: FUROSEMIDE
     Dosage: 40 MILLIGRAM
     Route: 048
  497. FUROSEMIDE [Concomitant]
     Active Substance: FUROSEMIDE
     Dosage: 40 MILLIGRAM
     Route: 048
  498. ALBUTEROL [Concomitant]
     Active Substance: ALBUTEROL
     Indication: Chronic obstructive pulmonary disease
     Dosage: 200 MICROGRAM, PRN (BID)
  499. ALBUTEROL [Concomitant]
     Active Substance: ALBUTEROL
     Dosage: UNK
     Route: 065
  500. ALBUTEROL [Concomitant]
     Active Substance: ALBUTEROL
     Dosage: 200 MICROGRAM
  501. ALBUTEROL [Concomitant]
     Active Substance: ALBUTEROL
     Dosage: 200 MICROGRAM, 2 EVERY 1 DAYS
  502. ALBUTEROL [Concomitant]
     Active Substance: ALBUTEROL
     Dosage: 200 MICROGRAM, PRN (BID)
     Route: 055
  503. ALBUTEROL [Concomitant]
     Active Substance: ALBUTEROL
     Dosage: 200 MICROGRAM
     Route: 065
  504. ALBUTEROL [Concomitant]
     Active Substance: ALBUTEROL
     Dosage: 200 MICROGRAM
  505. ALBUTEROL [Concomitant]
     Active Substance: ALBUTEROL
     Dosage: 200 MICROGRAM, PRN (AS REQUIRED)
     Route: 065
  506. ALBUTEROL [Concomitant]
     Active Substance: ALBUTEROL
     Dosage: 200 MICROGRAM, 1 EVERY .5 DAYS
  507. ALBUTEROL [Concomitant]
     Active Substance: ALBUTEROL
     Dosage: 200 MICROGRAM
     Route: 065
  508. ALBUTEROL [Concomitant]
     Active Substance: ALBUTEROL
     Dosage: 200 MICROGRAM, 2 EVERY 1 DAYS
     Route: 065
  509. ALBUTEROL [Concomitant]
     Active Substance: ALBUTEROL
     Dosage: 200 MICROGRAM
     Route: 065
  510. ALBUTEROL [Concomitant]
     Active Substance: ALBUTEROL
     Dosage: 200 MICROGRAM
  511. ALBUTEROL [Concomitant]
     Active Substance: ALBUTEROL
     Dosage: 200 MICROGRAM
     Route: 065
  512. ALBUTEROL [Concomitant]
     Active Substance: ALBUTEROL
     Dosage: 200 MICROGRAM
     Route: 065
  513. ALBUTEROL [Concomitant]
     Active Substance: ALBUTEROL
     Dosage: UNK
     Route: 065
  514. ALBUTEROL [Concomitant]
     Active Substance: ALBUTEROL
     Dosage: 200 MICROGRAM
     Route: 065
  515. ALBUTEROL [Concomitant]
     Active Substance: ALBUTEROL
     Dosage: 200 MICROGRAM
     Route: 065
  516. ALBUTEROL [Concomitant]
     Active Substance: ALBUTEROL
     Dosage: 200 MICROGRAM
     Route: 065
  517. ALBUTEROL [Concomitant]
     Active Substance: ALBUTEROL
     Dosage: 200 MICROGRAM
     Route: 065
  518. NALOXONE [Concomitant]
     Active Substance: NALOXONE
     Indication: Pain
     Dosage: UNK
     Route: 065
  519. NALOXONE [Concomitant]
     Active Substance: NALOXONE
     Dosage: 500.0 MILLIGRAM, 1 EVERY .5 DAYS
     Route: 048
  520. NALOXONE [Concomitant]
     Active Substance: NALOXONE
     Dosage: 5.0 MICROGRAM, 1 EVERY 1 DAYS
     Route: 065
  521. NALOXONE [Concomitant]
     Active Substance: NALOXONE
     Dosage: 500.0 MILLIGRAM, 2 EVERY 1 DAYS
     Route: 048
  522. NALOXONE [Concomitant]
     Active Substance: NALOXONE
     Dosage: UNK
     Route: 065
  523. NALOXONE [Concomitant]
     Active Substance: NALOXONE
     Dosage: 500 MILLIGRAM
     Route: 048
  524. NALOXONE [Concomitant]
     Active Substance: NALOXONE
     Dosage: 500 MILLIGRAM
     Route: 048
  525. NALOXONE [Concomitant]
     Active Substance: NALOXONE
     Dosage: 500 MILLIGRAM
     Route: 048
  526. NALOXONE [Concomitant]
     Active Substance: NALOXONE
     Dosage: 5.0 MICROGRAM
     Route: 065
  527. NALOXONE [Concomitant]
     Active Substance: NALOXONE
     Dosage: 500 MILLIGRAM
     Route: 048
  528. NALOXONE [Concomitant]
     Active Substance: NALOXONE
     Dosage: 500 MILLIGRAM
     Route: 048
  529. NALOXONE [Concomitant]
     Active Substance: NALOXONE
     Dosage: 500 MILLIGRAM
     Route: 048
  530. NALOXONE [Concomitant]
     Active Substance: NALOXONE
     Dosage: 500 MILLIGRAM
     Route: 048
  531. NALOXONE [Concomitant]
     Active Substance: NALOXONE
     Dosage: 500 MILLIGRAM
     Route: 048
  532. SPIRIVA [Concomitant]
     Active Substance: TIOTROPIUM BROMIDE MONOHYDRATE
     Indication: Chronic obstructive pulmonary disease
     Dosage: UNK
     Route: 065
  533. SPIRIVA [Concomitant]
     Active Substance: TIOTROPIUM BROMIDE MONOHYDRATE
     Dosage: 5 MICROGRAM
     Route: 065
  534. SPIRIVA [Concomitant]
     Active Substance: TIOTROPIUM BROMIDE MONOHYDRATE
     Dosage: 5 MICROGRAM
     Route: 065
  535. ATENOLOL [Concomitant]
     Active Substance: ATENOLOL
     Indication: Hypertension
     Dosage: UNK
     Route: 065
  536. ATENOLOL [Concomitant]
     Active Substance: ATENOLOL
     Dosage: 50 MILLIGRAM, EVERY 1 DAYS
     Route: 048
  537. ATENOLOL [Concomitant]
     Active Substance: ATENOLOL
     Dosage: 50 MILLIGRAM, 1 EVERY 1 DAYS
     Route: 048
  538. ATENOLOL [Concomitant]
     Active Substance: ATENOLOL
     Dosage: 50 MILLIGRAM, 1 EVERY 1 DAYS
     Route: 048
  539. ATENOLOL [Concomitant]
     Active Substance: ATENOLOL
     Dosage: UNK
     Route: 065
  540. ATENOLOL [Concomitant]
     Active Substance: ATENOLOL
     Dosage: 50 MILLIGRAM, 1 EVERY 1 DAYS
     Route: 048
  541. ATENOLOL [Concomitant]
     Active Substance: ATENOLOL
     Dosage: UNK
     Route: 048
  542. ATENOLOL [Concomitant]
     Active Substance: ATENOLOL
     Dosage: 50 MILLIGRAM
     Route: 048
  543. ATENOLOL [Concomitant]
     Active Substance: ATENOLOL
     Dosage: 50 MILLIGRAM
     Route: 048
  544. ATENOLOL [Concomitant]
     Active Substance: ATENOLOL
     Dosage: 50 MILLIGRAM
     Route: 048
  545. ATENOLOL [Concomitant]
     Active Substance: ATENOLOL
     Dosage: 50 MILLIGRAM
     Route: 048
  546. CLONIDINE [Concomitant]
     Active Substance: CLONIDINE
     Indication: Product used for unknown indication
     Dosage: UNK
     Route: 065
  547. CLONIDINE [Concomitant]
     Active Substance: CLONIDINE
     Dosage: UNK
     Route: 065
  548. TIOTROPIUM BROMIDE [Concomitant]
     Active Substance: TIOTROPIUM BROMIDE
     Indication: Chronic obstructive pulmonary disease
     Dosage: 5 MICROGRAM, 1 EVERY 1 DAYS
  549. TIOTROPIUM BROMIDE [Concomitant]
     Active Substance: TIOTROPIUM BROMIDE
     Dosage: 5 MICROGRAM, 1 EVERY 1 DAYS
     Route: 065
  550. TIOTROPIUM BROMIDE [Concomitant]
     Active Substance: TIOTROPIUM BROMIDE
     Dosage: 5 MICROGRAM, 1 EVERY 1 DAYS
     Route: 065
  551. TIOTROPIUM BROMIDE [Concomitant]
     Active Substance: TIOTROPIUM BROMIDE
     Dosage: 5 MICROGRAM
     Route: 065

REACTIONS (5)
  - Toxicity to various agents [Unknown]
  - Drug interaction [Unknown]
  - Off label use [Unknown]
  - Respiratory depression [Unknown]
  - Depressed level of consciousness [Unknown]
